FAERS Safety Report 19409129 (Version 1)
Quarter: 2021Q2

REPORT INFORMATION
  Report Type: Report from Study
  Country: CA (occurrence: CA)
  Receive Date: 20210614
  Receipt Date: 20210614
  Transmission Date: 20210717
  Serious: Yes (Other)
  Sender: FDA-Public Use
  Company Number: CA-JNJFOC-20210543372

PATIENT
  Age: 32 Year
  Sex: Female
  Weight: 190 kg

DRUGS (3)
  1. STELARA [Suspect]
     Active Substance: USTEKINUMAB
     Dosage: PATIENT RECEIVED 5TH STELARA INDUCTION DOSE 520 MG
     Route: 042
     Dates: start: 20201117
  2. IMURAN [Concomitant]
     Active Substance: AZATHIOPRINE
     Indication: CROHN^S DISEASE
     Route: 048
  3. STELARA [Suspect]
     Active Substance: USTEKINUMAB
     Indication: CROHN^S DISEASE
     Dosage: LAST INJECTION RECEIVED ON 04?MAY?2021
     Route: 058

REACTIONS (4)
  - Infusion related reaction [Recovered/Resolved]
  - Therapeutic product effect decreased [Unknown]
  - Muscle spasms [Unknown]
  - Frequent bowel movements [Unknown]

NARRATIVE: CASE EVENT DATE: 20210604
